FAERS Safety Report 22038773 (Version 1)
Quarter: 2023Q1

REPORT INFORMATION
  Report Type: Spontaneous
  Country: DE (occurrence: DE)
  Receive Date: 20230227
  Receipt Date: 20230227
  Transmission Date: 20230417
  Serious: Yes (Congenital Anomaly, Other)
  Sender: FDA-Public Use
  Company Number: DE-EMBRYOTOX-202102888

PATIENT
  Age: 1 Day
  Sex: Male
  Weight: 2.83 kg

DRUGS (5)
  1. ESCITALOPRAM [Suspect]
     Active Substance: ESCITALOPRAM OXALATE
     Indication: Depression
     Dosage: 10 MILLIGRAM DAILY (10 [MG/D (BIS 5 MG/D) ], 1 {TRIMESTER}, 0. - 36.1. GESTATIONAL WEEK )
     Route: 064
     Dates: start: 20210208, end: 20211019
  2. COMIRNATY [Concomitant]
     Active Substance: TOZINAMERAN
     Indication: COVID-19 immunisation
     Dosage: 27.2. - 27.2. GESTATIONAL WEEK
     Route: 064
     Dates: start: 20210818, end: 20210818
  3. ALBUTEROL [Concomitant]
     Active Substance: ALBUTEROL
     Indication: Asthma
     Dosage: IF NEEDED
     Route: 064
  4. COMIRNATY [Concomitant]
     Active Substance: TOZINAMERAN
     Indication: COVID-19 immunisation
     Dosage: FIRST COVID-19 VACCINATION, 2 {TRIMESTER} , 25.1. - 25.1. GESTATIONAL WEEK
     Route: 064
     Dates: start: 20210803, end: 20210803
  5. BOOSTRIX [Concomitant]
     Active Substance: TETANUS TOXOID, REDUCED DIPHTHERIA TOXOID AND ACELLULAR PERTUSSIS VACCINE, ADSORBED ANTIGENS
     Indication: Immunisation
     Dosage: 3 {TRIMESTER}, 31. - 32. GESTATIONAL WEEK
     Route: 064

REACTIONS (3)
  - Craniosynostosis [Unknown]
  - Premature baby [Unknown]
  - Foetal exposure during pregnancy [Unknown]

NARRATIVE: CASE EVENT DATE: 20211001
